FAERS Safety Report 24053053 (Version 1)
Quarter: 2024Q3

REPORT INFORMATION
  Report Type: Spontaneous
  Country: US (occurrence: US)
  Receive Date: 20240705
  Receipt Date: 20240705
  Transmission Date: 20241017
  Serious: Yes (Death, Other)
  Sender: AMGEN
  Company Number: US-AMGEN-USASP2024130888

PATIENT
  Age: 54 Year
  Sex: Male

DRUGS (4)
  1. NEUPOGEN [Suspect]
     Active Substance: FILGRASTIM
     Indication: Neutropenia
     Dosage: UNK
     Route: 065
  2. MITOMYCIN C [Concomitant]
     Active Substance: MITOMYCIN
     Dosage: 15 MILLIGRAM/SQ. METER
  3. FLUOROURACIL [Concomitant]
     Active Substance: FLUOROURACIL
     Dosage: 400 MILLIGRAM/SQ. METER
     Route: 042
  4. LEUCOVORIN [Concomitant]
     Active Substance: LEUCOVORIN\LEUCOVORIN CALCIUM
     Dosage: 20 MILLIGRAM/SQ. METER
     Route: 042

REACTIONS (5)
  - Sepsis [Fatal]
  - Cardio-respiratory arrest [Unknown]
  - Neutropenia [Not Recovered/Not Resolved]
  - Fistula of small intestine [Recovered/Resolved]
  - Drug ineffective [Unknown]
